FAERS Safety Report 22051512 (Version 1)
Quarter: 2023Q1

REPORT INFORMATION
  Report Type: Report from Study
  Country: DE (occurrence: DE)
  Receive Date: 20230301
  Receipt Date: 20230301
  Transmission Date: 20230417
  Serious: Yes (Other)
  Sender: FDA-Public Use
  Company Number: DE-AMGEN-DEUNI2023034086

PATIENT
  Age: 47 Year
  Sex: Female
  Weight: 89.2 kg

DRUGS (4)
  1. TRASTUZUMAB [Suspect]
     Active Substance: TRASTUZUMAB
     Indication: Breast cancer
     Dosage: 594 MILLIGRAM, Q3WK, 02/DEC/2021, RECEIVED LAST RECENT DOSE 594 MG OF TRASTUZUMAB PRIOR TO ADVERSE E
     Route: 065
     Dates: start: 20211202
  2. CARBOPLATIN [Suspect]
     Active Substance: CARBOPLATIN
     Indication: Breast cancer
     Dosage: UNK UNK, Q3WK/ 02/DEC/2021, RECEIVED LAST RECENT DOSE 849.3 MG OF CARBOPLATIN PRIOR TO ADVERSE EVENT
     Route: 065
     Dates: start: 20211111
  3. PERTUZUMAB [Suspect]
     Active Substance: PERTUZUMAB
     Indication: Breast cancer
     Dosage: 420 MILLIGRAM, Q3WK, 02/DEC/2021, RECEIVED LAST RECENT DOSE 420 MG OF PERTUZUMAB PRIOR TO ADVERSE EV
     Route: 065
     Dates: start: 20211202
  4. DOCETAXEL [Suspect]
     Active Substance: DOCETAXEL
     Indication: Breast cancer
     Dosage: 162.75 MILLIGRAM, Q3WK, 02/DEC/2021, RECEIVED LAST RECENT DOSE 162.75 MG OF DOCETAXEL PRIOR TO ADVER
     Route: 065
     Dates: start: 20211111

REACTIONS (1)
  - Polyneuropathy [Recovering/Resolving]

NARRATIVE: CASE EVENT DATE: 20211227
